FAERS Safety Report 20566514 (Version 3)
Quarter: 2022Q2

REPORT INFORMATION
  Report Type: Spontaneous
  Country: US (occurrence: US)
  Receive Date: 20220308
  Receipt Date: 20220420
  Transmission Date: 20220721
  Serious: Yes (Hospitalization, Other)
  Sender: FDA-Public Use
  Company Number: US-LUPIN PHARMACEUTICALS INC.-2022-03108

PATIENT
  Sex: Female
  Weight: 71.67 kg

DRUGS (8)
  1. LISINOPRIL [Suspect]
     Active Substance: LISINOPRIL
     Indication: Blood pressure abnormal
     Dosage: 40 MILLIGRAM, QD
     Route: 065
  2. AMLODIPINE BESYLATE [Concomitant]
     Active Substance: AMLODIPINE BESYLATE
     Indication: Blood pressure abnormal
     Dosage: 2.5 MILLIGRAM (FOR ABOUT YEAR)
     Route: 065
  3. AMLODIPINE BESYLATE [Concomitant]
     Active Substance: AMLODIPINE BESYLATE
     Dosage: 10 MILLIGRAM
     Route: 065
  4. Covid-19 vaccine [Concomitant]
     Indication: COVID-19
     Dosage: UNK
     Route: 030
     Dates: start: 20210402
  5. Covid-19 vaccine [Concomitant]
     Dosage: UNK
     Route: 030
     Dates: start: 20210423
  6. HYOSCYAMINE [Concomitant]
     Active Substance: HYOSCYAMINE
     Indication: Abdominal discomfort
     Dosage: 0.125 MILLIGRAM, PRN  (EVERY 4 HOURS)
     Route: 065
  7. ZOFRAN [Concomitant]
     Active Substance: ONDANSETRON HYDROCHLORIDE
     Indication: Product used for unknown indication
     Dosage: UNK (4 YEARS AGO)
     Route: 065
  8. NEXIUM [Concomitant]
     Active Substance: ESOMEPRAZOLE MAGNESIUM
     Indication: Gastrooesophageal reflux disease
     Dosage: UNK (FOR YEARS)
     Route: 065

REACTIONS (2)
  - Drug ineffective [Unknown]
  - Product use complaint [Unknown]
